FAERS Safety Report 9653387 (Version 1)
Quarter: 2013Q4

REPORT INFORMATION
  Report Type: Spontaneous
  Country: US (occurrence: None)
  Receive Date: 20131028
  Receipt Date: 20131028
  Transmission Date: 20140711
  Serious: Yes (Other)
  Sender: FDA-Public Use
  Company Number: 2013P1020311

PATIENT
  Age: 28 Year
  Sex: Male
  Weight: 99.79 kg

DRUGS (1)
  1. MYORISAN 40 MG [Suspect]
     Indication: ACNE
     Route: 048
     Dates: start: 20130924, end: 20131010

REACTIONS (1)
  - Anaphylactic shock [None]
